FAERS Safety Report 6404601-0 (Version None)
Quarter: 2009Q4

REPORT INFORMATION
  Report Type: 
  Country: None (occurrence: None)
  Receive Date: 20091016
  Receipt Date: 20091012
  Transmission Date: 20100525
  Serious: Yes (Hospitalization)
  Sender: FDA-Public Use
  Company Number: DE-B.I. PHARMACEUTICALS,INC./RIDGEFIELD-2009-DE-06454DE

PATIENT
  Age: 45 Year
  Sex: Male
  Weight: 105 kg

DRUGS (1)
  1. MICARDIS HCT [Suspect]
     Indication: HYPERTENSION
     Dosage: 80 MG TELMISARTAN + 12.5 MG HYDROCHLOROTHIAZID DAILY DOSE
     Route: 048

REACTIONS (3)
  - PRURITUS [None]
  - RASH GENERALISED [None]
  - RASH PUSTULAR [None]
